FAERS Safety Report 8975937 (Version 1)
Quarter: 2012Q4

REPORT INFORMATION
  Report Type: 
  Country: US (occurrence: US)
  Receive Date: 20121219
  Receipt Date: 20121219
  Transmission Date: 20130627
  Serious: Yes (Other)
  Sender: FDA-Public Use
  Company Number: PHHY2012US115393

PATIENT
  Sex: Female

DRUGS (3)
  1. ACETYLSALICYLIC ACID [Suspect]
     Indication: CARDIAC DISORDER
     Route: 048
  2. ASCRIPTIN BUFFERED CAPS UNKNOWN FORMULA [Suspect]
     Dosage: 1 DF, UNK
     Route: 048
  3. PROTONIX [Concomitant]
     Route: 048

REACTIONS (3)
  - Diabetes mellitus [Not Recovered/Not Resolved]
  - Abdominal discomfort [Not Recovered/Not Resolved]
  - Incorrect drug administration duration [Unknown]
